FAERS Safety Report 21910005 (Version 3)
Quarter: 2023Q1

REPORT INFORMATION
  Report Type: Spontaneous
  Country: US (occurrence: US)
  Receive Date: 20230125
  Receipt Date: 20230320
  Transmission Date: 20230417
  Serious: Yes (Hospitalization, Other)
  Sender: FDA-Public Use
  Company Number: US-PFIZER INC-2021269450

PATIENT
  Age: 88 Year
  Sex: Male
  Weight: 60.78 kg

DRUGS (3)
  1. VYNDAMAX [Suspect]
     Active Substance: TAFAMIDIS
     Indication: Atrioventricular block
     Dosage: 61 MG, 1X/DAY
     Dates: start: 201907
  2. VYNDAMAX [Suspect]
     Active Substance: TAFAMIDIS
     Indication: Heart rate decreased
  3. VYNDAMAX [Suspect]
     Active Substance: TAFAMIDIS
     Indication: Amyloidosis

REACTIONS (4)
  - Heart rate decreased [Unknown]
  - Condition aggravated [Unknown]
  - Hypoacusis [Unknown]
  - Dyspnoea [Unknown]
